FAERS Safety Report 10692046 (Version 2)
Quarter: 2015Q1

REPORT INFORMATION
  Report Type: Spontaneous
  Country: IL (occurrence: IL)
  Receive Date: 20150106
  Receipt Date: 20150213
  Transmission Date: 20150720
  Serious: Yes (Other)
  Sender: FDA-Public Use
  Company Number: IL-ROCHE-1517136

PATIENT
  Age: 40 Year
  Sex: Female

DRUGS (1)
  1. MABTHERA [Suspect]
     Active Substance: RITUXIMAB
     Indication: RHEUMATOID ARTHRITIS
     Route: 065
     Dates: start: 201406

REACTIONS (5)
  - Urinary incontinence [Unknown]
  - Small fibre neuropathy [Unknown]
  - Muscular weakness [Unknown]
  - Diplopia [Unknown]
  - Musculoskeletal pain [Unknown]
